FAERS Safety Report 9228494 (Version 3)
Quarter: 2013Q2

REPORT INFORMATION
  Report Type: Report from Study
  Country: DE (occurrence: DE)
  Receive Date: 20130412
  Receipt Date: 20130503
  Transmission Date: 20140414
  Serious: Yes (Hospitalization)
  Sender: FDA-Public Use
  Company Number: DE-ROCHE-1213199

PATIENT
  Age: 54 Year
  Sex: Female
  Weight: 92 kg

DRUGS (6)
  1. PEG-INTERFERON ALFA 2A [Suspect]
     Indication: CHRONIC HEPATITIS C
     Dosage: DATE OF LAST DOSE PRIOR TO SAE: 25/JAN/2013
     Route: 058
     Dates: start: 20130117
  2. RIBAVIRIN [Suspect]
     Indication: CHRONIC HEPATITIS C
     Route: 065
  3. TELAPREVIR [Suspect]
     Indication: CHRONIC HEPATITIS C
     Route: 048
     Dates: start: 20130117
  4. CITALOPRAM [Concomitant]
     Indication: DEPRESSION
     Route: 048
     Dates: start: 20120503
  5. DOXEPIN [Concomitant]
     Indication: DEPRESSION
     Route: 048
     Dates: start: 20120503
  6. IBUPROFEN [Concomitant]
     Route: 048
     Dates: start: 20130117

REACTIONS (3)
  - Pancytopenia [Not Recovered/Not Resolved]
  - Rash generalised [Not Recovered/Not Resolved]
  - Anaphylactic reaction [Not Recovered/Not Resolved]
